FAERS Safety Report 7698700-3 (Version None)
Quarter: 2011Q3

REPORT INFORMATION
  Report Type: 
  Country: None (occurrence: None)
  Receive Date: 20110819
  Receipt Date: 20110809
  Transmission Date: 20111222
  Serious: Yes (Hospitalization, Other)
  Sender: FDA-Public Use
  Company Number: US-BAYER-201040594NA

PATIENT
  Age: 31 Year
  Sex: Female
  Weight: 78.912 kg

DRUGS (29)
  1. STADOL [Concomitant]
     Dosage: 1 MG, BID
  2. TORADOL [Concomitant]
     Dosage: 60 MG, UNK
     Route: 030
     Dates: start: 20080514
  3. YAZ [Suspect]
     Dosage: UNK
     Dates: start: 20020101
  4. FENTANYL/BUPIVICAINE [Concomitant]
     Dosage: 650 MG, UNK
     Route: 048
     Dates: start: 20080514
  5. FERROUS SULFATE TAB [Concomitant]
     Dosage: 325 MG, MT
     Route: 048
     Dates: start: 20080514
  6. HYDROMORPHONE HCL [Concomitant]
     Indication: PAIN
     Dosage: 1 MG, Q3HR
     Route: 041
     Dates: start: 20080514
  7. REGLAN [Concomitant]
     Indication: VOMITING
  8. ZOFRAN [Concomitant]
     Dosage: 4 MG, UNK
     Route: 041
     Dates: start: 20080514
  9. METHERGINE [Concomitant]
     Indication: HAEMORRHAGE
     Dosage: 2 MG, UNK
     Route: 048
     Dates: start: 20080514
  10. SIMETHICONE [Concomitant]
     Indication: FLATULENCE
     Dosage: 80 MG, UNK
     Route: 048
     Dates: start: 20080514
  11. AMBIEN [Concomitant]
     Indication: SLEEP DISORDER
     Dosage: UNK
     Route: 048
     Dates: start: 20080514
  12. RUBELLA VACCINE [Concomitant]
     Dosage: 5 MG, UNK
     Route: 058
     Dates: start: 20080514
  13. PRENATAL VITAMINS [Concomitant]
     Dosage: UNK UNK, QD
     Route: 048
     Dates: start: 20070801, end: 20080501
  14. BENADRYL [Concomitant]
     Indication: PRURITUS
     Dosage: 25 MG, UNK
     Route: 048
     Dates: start: 20080514
  15. DULCOLAX [Concomitant]
     Indication: CONSTIPATION
     Dosage: 10 MG, UNK
     Route: 054
     Dates: start: 20080514
  16. NUBAIN [Concomitant]
     Dosage: UNK
     Dates: start: 20080514
  17. MOTRIN [Concomitant]
     Dosage: 600 MG, UNK
     Route: 048
     Dates: start: 20080514
  18. REGLAN [Concomitant]
     Indication: NAUSEA
     Dosage: 10 MG, UNK
     Route: 041
     Dates: start: 20080514
  19. PHENERGAN HCL [Concomitant]
     Dosage: UNK
     Dates: start: 20080514
  20. FENTANYL/BUPIVICAINE [Concomitant]
     Dosage: UNK
     Dates: start: 20080514
  21. SODIUM CITRATE/CITRIC ACID [Concomitant]
     Dosage: UNK
     Dates: start: 20080514
  22. SENOKOT [Concomitant]
     Dosage: UNK
     Route: 048
     Dates: start: 20080514
  23. YAZ [Suspect]
     Dosage: UNK
     Dates: end: 20090101
  24. PITOCIN [Concomitant]
     Dosage: 20 U, UNK
     Route: 041
     Dates: start: 20080514
  25. UNASYN [Concomitant]
     Dosage: 6 G, UNK
     Route: 041
     Dates: start: 20080514
  26. MORPHINE SULFATE [Concomitant]
     Indication: PAIN
     Dosage: 4 MG, Q3HR
     Route: 041
     Dates: start: 20080514
  27. YAZ [Suspect]
     Indication: CONTRACEPTION
     Dosage: UNK
     Dates: start: 20050301, end: 20070801
  28. SCOPOLAMINE [Concomitant]
     Dosage: UNK
     Route: 062
     Dates: start: 20080514
  29. PERCOCET [Concomitant]
     Dosage: UNK
     Route: 048
     Dates: start: 20080514

REACTIONS (2)
  - THROMBOSIS [None]
  - PULMONARY EMBOLISM [None]
